FAERS Safety Report 12668690 (Version 2)
Quarter: 2016Q3

REPORT INFORMATION
  Report Type: Report from Study
  Country: DE (occurrence: DE)
  Receive Date: 20160819
  Receipt Date: 20160830
  Transmission Date: 20161109
  Serious: Yes (Hospitalization, Other)
  Sender: FDA-Public Use
  Company Number: PHHY2013DE092527

PATIENT
  Sex: Female
  Weight: 85 kg

DRUGS (2)
  1. AFINITOR [Suspect]
     Active Substance: EVEROLIMUS
     Indication: BREAST CANCER METASTATIC
     Dosage: 10 MG, QD
     Route: 048
     Dates: start: 20130726, end: 20130827
  2. EXEMESTANE. [Concomitant]
     Active Substance: EXEMESTANE
     Indication: BREAST CANCER METASTATIC
     Dosage: 25 MG, QD
     Route: 048
     Dates: start: 20130726, end: 20140206

REACTIONS (3)
  - Interstitial lung disease [Recovered/Resolved]
  - C-reactive protein increased [Unknown]
  - Cough [Unknown]

NARRATIVE: CASE EVENT DATE: 20130823
